FAERS Safety Report 6939930-5 (Version None)
Quarter: 2010Q3

REPORT INFORMATION
  Report Type: 
  Country: None (occurrence: None)
  Receive Date: 20100825
  Receipt Date: 20100813
  Transmission Date: 20110219
  Serious: Yes (Other)
  Sender: FDA-Public Use
  Company Number: DE-PFIZER INC-2010100858

PATIENT
  Age: 12 Year
  Sex: Female

DRUGS (1)
  1. GENOTROPIN [Suspect]
     Dosage: 12 MG (1.0-1.2 ML)
     Dates: start: 20080101

REACTIONS (3)
  - FATIGUE [None]
  - MYALGIA [None]
  - MYOSITIS [None]
